FAERS Safety Report 12612314 (Version 1)
Quarter: 2016Q3

REPORT INFORMATION
  Report Type: Spontaneous
  Country: US (occurrence: US)
  Receive Date: 20160801
  Receipt Date: 20160801
  Transmission Date: 20161109
  Serious: Yes (Other)
  Sender: FDA-Public Use
  Company Number: US-PFIZER INC-2016369171

PATIENT
  Age: 74 Year

DRUGS (1)
  1. CHANTIX [Suspect]
     Active Substance: VARENICLINE TARTRATE
     Dosage: UNK

REACTIONS (5)
  - Lung neoplasm malignant [Unknown]
  - Vomiting [Unknown]
  - Therapeutic response unexpected [Unknown]
  - Energy increased [Unknown]
  - Wrong technique in product usage process [Unknown]
